FAERS Safety Report 7764637-4 (Version None)
Quarter: 2011Q3

REPORT INFORMATION
  Report Type: 
  Country: None (occurrence: None)
  Receive Date: 20110921
  Receipt Date: 20110909
  Transmission Date: 20111222
  Serious: Yes (Hospitalization)
  Sender: FDA-Public Use
  Company Number: PHHY2011AU38405

PATIENT
  Sex: Female

DRUGS (7)
  1. IMATINIB MESYLATE [Suspect]
     Indication: CHRONIC MYELOID LEUKAEMIA
     Dosage: 400 MG, UNK
     Route: 048
  2. TOFRANIL [Concomitant]
     Dosage: UNK UKN, UNK
  3. RANITIDINE [Concomitant]
     Dosage: UNK UKN, UNK
  4. PROCHLORPERAZINE [Concomitant]
     Dosage: UNK UKN, UNK
  5. VITAMIN B-12 [Concomitant]
     Dosage: UNK UKN, UNK
  6. LEVOTHYROXINE SODIUM [Concomitant]
     Dosage: UNK UKN, UNK
  7. LIPITOR [Concomitant]
     Dosage: UNK UKN, UNK

REACTIONS (7)
  - BREAST PAIN [None]
  - FIBROCYSTIC BREAST DISEASE [None]
  - METASTASIS [None]
  - BREAST CANCER METASTATIC [None]
  - NEOPLASM MALIGNANT [None]
  - EPIDERMAL GROWTH FACTOR RECEPTOR INCREASED [None]
  - BREAST MASS [None]
